FAERS Safety Report 6010084-5 (Version None)
Quarter: 2008Q4

REPORT INFORMATION
  Report Type: 
  Country: None (occurrence: None)
  Receive Date: 20081218
  Receipt Date: 20081208
  Transmission Date: 20090506
  Serious: Yes (Life-Threatening)
  Sender: FDA-Public Use
  Company Number: GB-CELGENEUS-167-C5013-08120578

PATIENT
  Sex: Female

DRUGS (5)
  1. REVLIMID [Suspect]
     Route: 048
     Dates: start: 20060623
  2. REVLIMID [Suspect]
     Route: 048
     Dates: start: 20061108, end: 20061128
  3. REVLIMID [Suspect]
     Route: 048
     Dates: start: 20061206, end: 20061219
  4. REVLIMID [Suspect]
     Route: 048
     Dates: start: 20070103
  5. NEUPOGEN [Concomitant]
     Indication: NEUTROPENIA
     Route: 058
     Dates: start: 20060719, end: 20070620

REACTIONS (1)
  - NEUTROPENIA [None]
